FAERS Safety Report 13445035 (Version 1)
Quarter: 2017Q2

REPORT INFORMATION
  Report Type: Spontaneous
  Country: US (occurrence: US)
  Receive Date: 20170414
  Receipt Date: 20170414
  Transmission Date: 20170830
  Serious: Yes (Other)
  Sender: FDA-Public Use
  Company Number: US-ALEXION-A201703739

PATIENT
  Sex: Female

DRUGS (1)
  1. SOLIRIS [Suspect]
     Active Substance: ECULIZUMAB
     Indication: HAEMOLYTIC URAEMIC SYNDROME
     Dosage: UNK
     Route: 042

REACTIONS (12)
  - Thrombotic microangiopathy [Unknown]
  - Liver function test abnormal [Unknown]
  - Anaemia [Unknown]
  - Nephrolithiasis [Unknown]
  - Haemolysis [Unknown]
  - Nuclear magnetic resonance imaging abnormal [Unknown]
  - Headache [Unknown]
  - Dystrophic calcification [Unknown]
  - Tachycardia [Unknown]
  - Kidney angiomyolipoma [Unknown]
  - Chromaturia [Unknown]
  - Chronic idiopathic pain syndrome [Unknown]

NARRATIVE: CASE EVENT DATE: 20170219
